FAERS Safety Report 4621601-1 (Version None)
Quarter: 2005Q1

REPORT INFORMATION
  Report Type: 
  Country: None (occurrence: None)
  Receive Date: 20050329
  Receipt Date: 20041230
  Transmission Date: 20050727
  Serious: Yes (Other)
  Sender: FDA-Public Use
  Company Number: 2004243488US

PATIENT
  Age: 70 Year
  Sex: Male
  Weight: 72.5755 kg

DRUGS (1)
  1. CELEBREX [Suspect]
     Indication: ARTHRITIS
     Dosage: 200 MG (1 D), ORAL
     Route: 048
     Dates: start: 20030101, end: 20030101

REACTIONS (2)
  - BLOOD PRESSURE ABNORMAL [None]
  - HEART RATE IRREGULAR [None]
